FAERS Safety Report 18311058 (Version 1)
Quarter: 2020Q3

REPORT INFORMATION
  Report Type: Spontaneous
  Country: SE (occurrence: SE)
  Receive Date: 20200925
  Receipt Date: 20200925
  Transmission Date: 20201103
  Serious: Yes (Hospitalization)
  Sender: FDA-Public Use
  Company Number: SE-TEVA-2020-SE-1830190

PATIENT
  Age: 21 Year
  Sex: Female

DRUGS (6)
  1. ALVEDON [Suspect]
     Active Substance: ACETAMINOPHEN
     Dates: start: 202008, end: 202008
  2. DULOXETINE. [Suspect]
     Active Substance: DULOXETINE
     Dates: start: 202008, end: 202008
  3. THERALEN [Suspect]
     Active Substance: TRIMEPRAZINE
     Dates: start: 202008, end: 202008
  4. CIPRALEX [Suspect]
     Active Substance: ESCITALOPRAM OXALATE
     Dates: start: 202008, end: 202008
  5. CIRCADIN [Suspect]
     Active Substance: MELATONIN
     Dates: start: 202008, end: 202008
  6. PROPAVAN [Suspect]
     Active Substance: PROPIOMAZINE
     Dates: start: 202008, end: 202008

REACTIONS (4)
  - Toxicity to various agents [Recovered/Resolved]
  - Intentional overdose [Recovered/Resolved]
  - Tachycardia [Recovered/Resolved]
  - Intentional self-injury [Recovered/Resolved]

NARRATIVE: CASE EVENT DATE: 202008
